FAERS Safety Report 8052292 (Version 4)
Quarter: 2013Q4

REPORT INFORMATION
  Report Type: Spontaneous
  Country: US (occurrence: US)
  Receive Date: 20110725
  Receipt Date: 20131226
  Transmission Date: 20140711
  Serious: Yes (Other)
  Sender: FDA-Public Use
  Company Number: PHHY2011US65550

PATIENT
  Age: 53 Year
  Sex: Male
  Weight: 96.1 kg

DRUGS (5)
  1. TASIGNA (AMN107) [Suspect]
     Indication: CHRONIC MYELOID LEUKAEMIA
     Route: 048
     Dates: start: 20101227, end: 20110223
  2. GLEEVEC [Suspect]
     Indication: CHRONIC MYELOID LEUKAEMIA
     Route: 048
  3. CLARITIN [Concomitant]
     Dosage: UNK
  4. LISINOPRIL [Concomitant]
     Dosage: UNK
  5. AUGMENTIN (AMOXICILLIN, CLAVULANIC ACID) [Concomitant]
     Dosage: 875 MG, UNK
     Route: 048
     Dates: start: 20110208, end: 20110218

REACTIONS (2)
  - Rash [Not Recovered/Not Resolved]
  - Blister [Not Recovered/Not Resolved]
